FAERS Safety Report 17204899 (Version 1)
Quarter: 2019Q4

REPORT INFORMATION
  Report Type: Spontaneous
  Country: None (occurrence: US)
  Receive Date: 20191226
  Receipt Date: 20191226
  Transmission Date: 20200122
  Serious: No
  Sender: FDA-Public Use
  Company Number: US-AMPHASTAR PHARMACEUTICALS, INC.-2078224

PATIENT
  Age: 26 Year
  Sex: Female
  Weight: 88.18 kg

DRUGS (2)
  1. VICKS PILLS [Concomitant]
  2. MEDROXYPROGESTERONE ACETATE (SINGLE-DOSE SYRINGE) [Suspect]
     Active Substance: MEDROXYPROGESTERONE ACETATE
     Indication: CONTRACEPTION
     Route: 030
     Dates: start: 201908

REACTIONS (2)
  - Metrorrhagia [Unknown]
  - Incorrect dose administered [Unknown]

NARRATIVE: CASE EVENT DATE: 201909
